FAERS Safety Report 24317338 (Version 2)
Quarter: 2024Q4

REPORT INFORMATION
  Report Type: Spontaneous
  Country: JP (occurrence: JP)
  Receive Date: 20240913
  Receipt Date: 20241031
  Transmission Date: 20250114
  Serious: Yes (Other)
  Sender: MERCK
  Company Number: JP-MSD-M2024-35949

PATIENT
  Age: 79 Year
  Sex: Female

DRUGS (7)
  1. KEYTRUDA [Suspect]
     Active Substance: PEMBROLIZUMAB
     Indication: Bile duct cancer
     Dosage: 200 MILLIGRAM, Q3W
     Route: 041
     Dates: start: 20240722
  2. CISPLATIN [Suspect]
     Active Substance: CISPLATIN
     Dosage: UNK
     Route: 065
     Dates: start: 20240722, end: 20240819
  3. CISPLATIN [Suspect]
     Active Substance: CISPLATIN
     Dosage: 80% DOSE
     Route: 065
     Dates: start: 20240820, end: 20240902
  4. CISPLATIN [Suspect]
     Active Substance: CISPLATIN
     Dosage: 60% DOSE
     Route: 065
     Dates: start: 20240903, end: 20240910
  5. GEMCITABINE HYDROCHLORIDE [Suspect]
     Active Substance: GEMCITABINE HYDROCHLORIDE
     Dosage: UNK
     Route: 065
     Dates: start: 20240722, end: 20240819
  6. GEMCITABINE HYDROCHLORIDE [Suspect]
     Active Substance: GEMCITABINE HYDROCHLORIDE
     Dosage: 80% DOSE
     Route: 065
     Dates: start: 20240820, end: 20240902
  7. GEMCITABINE HYDROCHLORIDE [Suspect]
     Active Substance: GEMCITABINE HYDROCHLORIDE
     Dosage: 60% DOSE
     Route: 065
     Dates: start: 20240903

REACTIONS (2)
  - Renal impairment [Recovered/Resolved]
  - Anaemia [Not Recovered/Not Resolved]

NARRATIVE: CASE EVENT DATE: 20240820
